FAERS Safety Report 8886217 (Version 1)
Quarter: 2012Q4

REPORT INFORMATION
  Report Type: 
  Country: US (occurrence: US)
  Receive Date: 20121105
  Receipt Date: 20121105
  Transmission Date: 20130627
  Serious: Yes (Death, Other)
  Sender: FDA-Public Use
  Company Number: PHHY2012US099584

PATIENT
  Age: 19 Month
  Sex: Male

DRUGS (8)
  1. FAMOTIDINE [Suspect]
  2. PANTOPRAZOLE [Interacting]
  3. SUCRALFATE [Interacting]
  4. POSACONAZOLE [Interacting]
     Indication: ZYGOMYCOSIS
     Dosage: 120 mg/kg, per day
  5. POSACONAZOLE [Interacting]
     Dosage: 3000 mg, per day
     Route: 048
  6. POSACONAZOLE [Interacting]
     Dosage: 1500 mg, per day
     Route: 048
  7. MICAFUNGIN [Concomitant]
     Indication: PROPHYLAXIS
  8. AMPHOTERICIN B [Concomitant]
     Indication: ZYGOMYCOSIS

REACTIONS (10)
  - Enterococcal sepsis [Fatal]
  - Multi-organ failure [Unknown]
  - Hepatic congestion [Unknown]
  - Hepatic necrosis [Unknown]
  - Hepatic fibrosis [Unknown]
  - Acute respiratory distress syndrome [Unknown]
  - Cardiac failure congestive [Unknown]
  - Iron overload [Unknown]
  - Haemosiderosis [Unknown]
  - Drug interaction [Unknown]
